FAERS Safety Report 15114576 (Version 1)
Quarter: 2018Q3

REPORT INFORMATION
  Report Type: Spontaneous
  Country: US (occurrence: US)
  Receive Date: 20180706
  Receipt Date: 20180706
  Transmission Date: 20181010
  Serious: No
  Sender: FDA-Public Use
  Company Number: US-ASTRAZENECA-2018SE76199

PATIENT
  Age: 27841 Day
  Sex: Male

DRUGS (8)
  1. ZURTEC [Concomitant]
  2. PULMICORT RESPULES [Suspect]
     Active Substance: BUDESONIDE
     Route: 055
  3. FASENRA [Suspect]
     Active Substance: BENRALIZUMAB
     Indication: ASTHMA
     Dosage: 30.0MG UNKNOWN
     Route: 055
     Dates: start: 20180531
  4. SINGULAIR [Concomitant]
     Active Substance: MONTELUKAST SODIUM
  5. FLONASE [Concomitant]
     Active Substance: FLUTICASONE PROPIONATE
  6. ADVAIR HFA [Concomitant]
     Active Substance: FLUTICASONE PROPIONATE\SALMETEROL XINAFOATE
     Indication: ASTHMA
     Route: 055
  7. SPIRIVA [Concomitant]
     Active Substance: TIOTROPIUM BROMIDE MONOHYDRATE
     Indication: ASTHMA
     Route: 055
  8. MELOXICAM. [Concomitant]
     Active Substance: MELOXICAM

REACTIONS (1)
  - Chills [Recovered/Resolved]

NARRATIVE: CASE EVENT DATE: 20180531
